FAERS Safety Report 5001254-3 (Version None)
Quarter: 2006Q2

REPORT INFORMATION
  Report Type: 
  Country: None (occurrence: None)
  Receive Date: 20060512
  Receipt Date: 20060505
  Transmission Date: 20061013
  Serious: Yes (Hospitalization)
  Sender: FDA-Public Use
  Company Number: FR-ABBOTT-06P-056-0332582-00

PATIENT
  Sex: Male

DRUGS (5)
  1. DEPAKOTE [Suspect]
     Indication: BIPOLAR DISORDER
     Dosage: 500 MG IN AM, 250 MG IN PM
     Route: 048
     Dates: start: 20051209, end: 20060315
  2. DEPAKOTE [Suspect]
     Route: 048
     Dates: start: 20051120, end: 20051208
  3. DEPAKOTE [Suspect]
     Dosage: 500 MG IN AM, 250 MG IN PM
     Route: 048
     Dates: start: 20051115, end: 20051119
  4. CYAMEMAZINE [Concomitant]
     Indication: DRUG USE FOR UNKNOWN INDICATION
     Route: 048
     Dates: start: 20051101, end: 20060226
  5. CYAMEMAZINE [Concomitant]
     Route: 048
     Dates: start: 20060227

REACTIONS (14)
  - AFFECTIVE DISORDER [None]
  - ANHEDONIA [None]
  - DEPRESSION [None]
  - DRUG INEFFECTIVE [None]
  - EUPHORIC MOOD [None]
  - FATIGUE [None]
  - GRANDIOSITY [None]
  - HYPERAESTHESIA [None]
  - HYPOMANIA [None]
  - IMPULSIVE BEHAVIOUR [None]
  - IRRITABILITY [None]
  - MANIA [None]
  - MOTOR DYSFUNCTION [None]
  - SOCIAL AVOIDANT BEHAVIOUR [None]
